FAERS Safety Report 21129029 (Version 1)
Quarter: 2022Q3

REPORT INFORMATION
  Report Type: Other
  Country: CA (occurrence: None)
  Receive Date: 20220725
  Receipt Date: 20220725
  Transmission Date: 20221026
  Serious: Yes (Hospitalization, Other)
  Sender: FDA-Public Use
  Company Number: CA-ROCHE-3136323

PATIENT
  Age: 44 Year
  Sex: Female
  Weight: 80 kg

DRUGS (20)
  1. ACTEMRA [Suspect]
     Active Substance: TOCILIZUMAB
     Indication: Rheumatoid arthritis
     Dosage: TRIAL ROLLOVER; LAST STUDY TREATMENT WAS 24/JAN/2011. NO ATCH/LOT AVAILABLE AS RECEIVED OUTSIDE RPAP
     Route: 042
     Dates: end: 20110124
  2. ACTEMRA [Suspect]
     Active Substance: TOCILIZUMAB
     Dosage: 1ST RPAP
     Route: 042
     Dates: start: 20110215, end: 20120215
  3. ACTEMRA [Suspect]
     Active Substance: TOCILIZUMAB
     Route: 042
     Dates: start: 20131205, end: 20181115
  4. ACTEMRA [Suspect]
     Active Substance: TOCILIZUMAB
     Dosage: 75 INFUSION
     Route: 042
     Dates: start: 20171207
  5. ACTEMRA [Suspect]
     Active Substance: TOCILIZUMAB
     Route: 042
     Dates: start: 20180111
  6. ACTEMRA [Suspect]
     Active Substance: TOCILIZUMAB
     Route: 042
     Dates: start: 20120731, end: 20131108
  7. ACTEMRA [Suspect]
     Active Substance: TOCILIZUMAB
     Route: 042
     Dates: start: 20120313, end: 20120703
  8. ACTEMRA [Suspect]
     Active Substance: TOCILIZUMAB
     Route: 042
     Dates: start: 20181213, end: 20191031
  9. ACTEMRA [Suspect]
     Active Substance: TOCILIZUMAB
     Route: 042
     Dates: start: 20191230, end: 20200128
  10. ACTEMRA [Suspect]
     Active Substance: TOCILIZUMAB
     Route: 042
     Dates: start: 20200224, end: 20201112
  11. ACTEMRA [Suspect]
     Active Substance: TOCILIZUMAB
     Route: 042
     Dates: start: 20201218, end: 20201218
  12. ACTEMRA [Suspect]
     Active Substance: TOCILIZUMAB
     Route: 042
     Dates: start: 20210107
  13. ACTEMRA [Suspect]
     Active Substance: TOCILIZUMAB
     Route: 042
     Dates: start: 20210517
  14. PLAQUENIL [Suspect]
     Active Substance: HYDROXYCHLOROQUINE SULFATE
     Indication: Product used for unknown indication
     Dosage: ON HOLD
     Route: 065
  15. METHOTREXATE [Suspect]
     Active Substance: METHOTREXATE
     Indication: Product used for unknown indication
     Route: 065
  16. CELEBREX [Concomitant]
     Active Substance: CELECOXIB
     Indication: Product used for unknown indication
  17. ESTRACE [Concomitant]
     Active Substance: ESTRADIOL
     Indication: Product used for unknown indication
  18. PROGESTERONE [Concomitant]
     Active Substance: PROGESTERONE
     Indication: Product used for unknown indication
  19. COPAXONE [Concomitant]
     Active Substance: GLATIRAMER ACETATE
  20. AUBAGIO [Concomitant]
     Active Substance: TERIFLUNOMIDE

REACTIONS (48)
  - Myelitis [Not Recovered/Not Resolved]
  - Herpes zoster [Unknown]
  - Hypoaesthesia [Not Recovered/Not Resolved]
  - Musculoskeletal disorder [Unknown]
  - Tendonitis [Recovering/Resolving]
  - Abdominal pain [Not Recovered/Not Resolved]
  - Ophthalmic herpes zoster [Unknown]
  - Loss of consciousness [Unknown]
  - Multiple sclerosis [Not Recovered/Not Resolved]
  - Gastroenteritis [Recovering/Resolving]
  - Skin ulcer [Recovered/Resolved]
  - Sinusitis [Recovering/Resolving]
  - Arthralgia [Unknown]
  - Acne [Unknown]
  - Bronchitis [Not Recovered/Not Resolved]
  - Blood pressure systolic increased [Unknown]
  - Oropharyngeal pain [Not Recovered/Not Resolved]
  - Rhinorrhoea [Not Recovered/Not Resolved]
  - Influenza like illness [Not Recovered/Not Resolved]
  - Nasopharyngitis [Not Recovered/Not Resolved]
  - Sinusitis [Recovered/Resolved]
  - Pyrexia [Unknown]
  - Cough [Unknown]
  - Arthropathy [Unknown]
  - Oxygen saturation decreased [Unknown]
  - Weight decreased [Recovering/Resolving]
  - Blood pressure systolic abnormal [Unknown]
  - Blood pressure fluctuation [Unknown]
  - Diarrhoea [Recovered/Resolved]
  - Weight increased [Unknown]
  - Blood pressure increased [Unknown]
  - Urinary tract infection [Recovered/Resolved]
  - Burning sensation [Unknown]
  - Blood pressure diastolic increased [Unknown]
  - Arthralgia [Unknown]
  - Heart rate increased [Unknown]
  - Dysphonia [Unknown]
  - Nasal congestion [Not Recovered/Not Resolved]
  - Erythema [Unknown]
  - Oropharyngeal pain [Recovered/Resolved]
  - Body temperature decreased [Unknown]
  - Blood pressure diastolic decreased [Unknown]
  - Bursitis [Unknown]
  - Drug tolerance [Unknown]
  - Arthritis [Unknown]
  - Inflammation [Unknown]
  - Pain in extremity [Unknown]
  - Blood pressure fluctuation [Unknown]

NARRATIVE: CASE EVENT DATE: 20140222
